FAERS Safety Report 13708415 (Version 2)
Quarter: 2017Q3

REPORT INFORMATION
  Report Type: Spontaneous
  Country: US (occurrence: US)
  Receive Date: 20170630
  Receipt Date: 20170706
  Transmission Date: 20171127
  Serious: Yes (Other)
  Sender: FDA-Public Use
  Company Number: US-SAOL THERAPEUTICS-2017SAO01116

PATIENT
  Sex: Male

DRUGS (4)
  1. FENTANYL. [Suspect]
     Active Substance: FENTANYL
     Route: 037
  2. COMPOUNDED BACLOFEN [Suspect]
     Active Substance: BACLOFEN
     Indication: SPINAL CORD INJURY
  3. COMPOUNDED BACLOFEN [Suspect]
     Active Substance: BACLOFEN
     Indication: MUSCLE SPASTICITY
     Dosage: 450 ?G, \DAY
     Route: 037
  4. FENTANYL. [Suspect]
     Active Substance: FENTANYL
     Dosage: 135 ?G, \DAY
     Route: 037

REACTIONS (6)
  - Incorrect route of drug administration [Recovered/Resolved]
  - Device infusion issue [Recovered/Resolved]
  - Feeling abnormal [Unknown]
  - Dizziness [Unknown]
  - Overdose [Recovered/Resolved]
  - Somnolence [Unknown]
